FAERS Safety Report 4616953-2 (Version None)
Quarter: 2005Q2

REPORT INFORMATION
  Report Type: 
  Country: None (occurrence: None)
  Receive Date: 20050311
  Receipt Date: 20041112
  Transmission Date: 20051028
  Serious: No
  Sender: FDA-Public Use
  Company Number: 2004-BP-09859BP

PATIENT
  Age: 77 Year
  Sex: Female

DRUGS (10)
  1. SPIRIVA [Suspect]
     Indication: CHRONIC OBSTRUCTIVE PULMONARY DISEASE
     Dosage: 18 MCG (18 MCG), IH
     Route: 055
     Dates: start: 20040907
  2. SPIRIVA [Suspect]
  3. AMILORIDE HCT 3 [Suspect]
     Indication: HYPERTENSION
     Dosage: 5/50 MG
  4. SEREVENT [Concomitant]
  5. FLOVENT [Concomitant]
  6. CARDIZEM CD [Concomitant]
  7. DIOVAN [Concomitant]
  8. PREVACID [Concomitant]
  9. ZOCOR [Concomitant]
  10. LABETALOL HCL [Concomitant]

REACTIONS (4)
  - BLOOD CREATININE INCREASED [None]
  - BLOOD UREA INCREASED [None]
  - JOINT SWELLING [None]
  - PRURITUS [None]
